FAERS Safety Report 4663454-1 (Version None)
Quarter: 2005Q2

REPORT INFORMATION
  Report Type: 
  Country: None (occurrence: None)
  Receive Date: 20050513
  Receipt Date: 20050503
  Transmission Date: 20051028
  Serious: Yes (Hospitalization)
  Sender: FDA-Public Use
  Company Number: 231741K05USA

PATIENT
  Age: 23 Year
  Sex: Female

DRUGS (2)
  1. REBIF [Suspect]
     Indication: MULTIPLE SCLEROSIS
     Dosage: 44 MCG, 3 IN 1 WEEKS, SUBCUTANEOUS
     Route: 058
     Dates: start: 20041110
  2. ORTHO TRI-CYCLEN (CILEST) [Concomitant]

REACTIONS (7)
  - DEPRESSION [None]
  - HEADACHE [None]
  - HYDRONEPHROSIS [None]
  - HYPERHIDROSIS [None]
  - NEPHROLITHIASIS [None]
  - OEDEMA [None]
  - VOMITING [None]
